FAERS Safety Report 5174294-1 (Version None)
Quarter: 2006Q4

REPORT INFORMATION
  Report Type: 
  Country: None (occurrence: None)
  Receive Date: 20061206
  Receipt Date: 20061123
  Transmission Date: 20070319
  Serious: Yes (Hospitalization)
  Sender: FDA-Public Use
  Company Number: 2006-310

PATIENT
  Age: 71 Year
  Sex: Male

DRUGS (1)
  1. WARFARIN SODIUM [Suspect]
     Indication: CEREBROVASCULAR ACCIDENT PROPHYLAXIS
     Dosage: 14-18 MG/WEEK

REACTIONS (9)
  - BRONCHITIS CHRONIC [None]
  - DYSPNOEA [None]
  - FOOD INTERACTION [None]
  - HAEMATOCHEZIA [None]
  - HAEMOGLOBIN DECREASED [None]
  - HAEMOPTYSIS [None]
  - HAEMORRHAGE [None]
  - HYPOPROTHROMBINAEMIA [None]
  - INTERNATIONAL NORMALISED RATIO INCREASED [None]
